FAERS Safety Report 24124432 (Version 1)
Quarter: 2024Q3

REPORT INFORMATION
  Report Type: Report from Study
  Country: US (occurrence: None)
  Receive Date: 20240723
  Receipt Date: 20240723
  Transmission Date: 20241016
  Serious: Yes (Hospitalization)
  Sender: ASTRAZENECA
  Company Number: 2022A171575

PATIENT
  Sex: Male

DRUGS (1)
  1. FASENRA [Suspect]
     Active Substance: BENRALIZUMAB
     Indication: Asthma
     Dosage: AT WEEKS 0, 4, AND 8 FOLLOWED BY EVERY 8 WEEKS THEREAFTER30.0MG UNKNOWN
     Route: 058

REACTIONS (1)
  - Cerebrovascular accident [Unknown]
